FAERS Safety Report 13478286 (Version 2)
Quarter: 2017Q2

REPORT INFORMATION
  Report Type: Spontaneous
  Country: PL (occurrence: PL)
  Receive Date: 20170425
  Receipt Date: 20170525
  Transmission Date: 20170830
  Serious: Yes (Death, Life-Threatening, Other)
  Sender: FDA-Public Use
  Company Number: PL-MYLANLABS-2017M1024474

PATIENT

DRUGS (6)
  1. ATORVASTATIN [Suspect]
     Active Substance: ATORVASTATIN
     Indication: PRODUCT USED FOR UNKNOWN INDICATION
     Dosage: UNK
  2. LEVOTHYROXINE. [Suspect]
     Active Substance: LEVOTHYROXINE
     Indication: PRODUCT USED FOR UNKNOWN INDICATION
  3. CARVEDILOL. [Suspect]
     Active Substance: CARVEDILOL
     Indication: PRODUCT USED FOR UNKNOWN INDICATION
  4. RAMIPRIL. [Suspect]
     Active Substance: RAMIPRIL
     Indication: PRODUCT USED FOR UNKNOWN INDICATION
  5. WARFARIN [Suspect]
     Active Substance: WARFARIN
     Indication: PRODUCT USED FOR UNKNOWN INDICATION
  6. SPIRONOLACTONE. [Suspect]
     Active Substance: SPIRONOLACTONE
     Indication: PRODUCT USED FOR UNKNOWN INDICATION
     Dosage: UNK

REACTIONS (16)
  - Metastatic neoplasm [Fatal]
  - Faeces discoloured [Unknown]
  - Condition aggravated [Unknown]
  - International normalised ratio increased [Unknown]
  - Gastritis erosive [Unknown]
  - Headache [Unknown]
  - Syncope [Unknown]
  - Fall [Unknown]
  - Cardiac arrest [Unknown]
  - Hiatus hernia [Unknown]
  - Overdose [Unknown]
  - Upper gastrointestinal haemorrhage [Unknown]
  - Malaise [Unknown]
  - Anaemia [Unknown]
  - Dizziness [Unknown]
  - Exercise tolerance decreased [Unknown]
